FAERS Safety Report 6917826-2 (Version None)
Quarter: 2010Q3

REPORT INFORMATION
  Report Type: 
  Country: None (occurrence: None)
  Receive Date: 20100810
  Receipt Date: 20090417
  Transmission Date: 20110219
  Serious: No
  Sender: FDA-Public Use
  Company Number: US-PFIZER INC-2009200706

PATIENT
  Sex: Male

DRUGS (1)
  1. TOVIAZ [Suspect]
     Dosage: UNK
     Dates: start: 20090401

REACTIONS (2)
  - URINARY RETENTION [None]
  - URINARY TRACT DISORDER [None]
